FAERS Safety Report 6633702-7 (Version None)
Quarter: 2010Q1

REPORT INFORMATION
  Report Type: 
  Country: None (occurrence: None)
  Receive Date: 20100314
  Receipt Date: 20100309
  Transmission Date: 20100710
  Serious: Yes (Hospitalization)
  Sender: FDA-Public Use
  Company Number: US-BRISTOL-MYERS SQUIBB COMPANY-15011927

PATIENT
  Sex: Female

DRUGS (2)
  1. IXABEPILONE [Suspect]
     Indication: BREAST CANCER
  2. CARBOPLATIN [Suspect]
     Indication: BREAST CANCER

REACTIONS (2)
  - FATIGUE [None]
  - PAIN [None]
